FAERS Safety Report 18945325 (Version 1)
Quarter: 2021Q1

REPORT INFORMATION
  Report Type: Report from Study
  Country: GB (occurrence: GB)
  Receive Date: 20210226
  Receipt Date: 20210226
  Transmission Date: 20210420
  Serious: Yes (Life-Threatening, Hospitalization, Other)
  Sender: FDA-Public Use
  Company Number: PHHY2019GB070489

PATIENT
  Age: 64 Year
  Sex: Male

DRUGS (4)
  1. TOSTRAN [Concomitant]
     Active Substance: TESTOSTERONE
     Dosage: UNK
     Route: 061
     Dates: start: 20140630
  2. OMNITROPE [Suspect]
     Active Substance: SOMATROPIN
     Indication: GROWTH HORMONE DEFICIENCY
     Dosage: 0.3 MG, QD,5 MG/1.5 ML
     Route: 058
     Dates: start: 20131107
  3. HIDROCORTISON [Concomitant]
     Active Substance: HYDROCORTISONE
     Indication: ADRENAL INSUFFICIENCY
     Dosage: UNK
     Route: 048
     Dates: start: 201107
  4. TOSTRAN [Concomitant]
     Active Substance: TESTOSTERONE
     Indication: HYPOGONADISM
     Dosage: UNK
     Route: 061
     Dates: start: 20130611

REACTIONS (6)
  - Coronary artery disease [Unknown]
  - Osteopenia [Not Recovered/Not Resolved]
  - Acute coronary syndrome [Recovered/Resolved with Sequelae]
  - Acute myocardial infarction [Unknown]
  - Chest pain [Recovered/Resolved]
  - Troponin increased [Recovered/Resolved with Sequelae]

NARRATIVE: CASE EVENT DATE: 20190321
